FAERS Safety Report 9693343 (Version 1)
Quarter: 2013Q4

REPORT INFORMATION
  Report Type: Spontaneous
  Country: AU (occurrence: AU)
  Receive Date: 20131118
  Receipt Date: 20131118
  Transmission Date: 20140711
  Serious: Yes (Other)
  Sender: FDA-Public Use
  Company Number: AU-PFIZER INC-2013324047

PATIENT
  Sex: Female

DRUGS (1)
  1. MONOFEME [Suspect]
     Dosage: UNK

REACTIONS (2)
  - Postmenopausal haemorrhage [Unknown]
  - Off label use [Unknown]
